FAERS Safety Report 5057490-3 (Version None)
Quarter: 2006Q3

REPORT INFORMATION
  Report Type: 
  Country: None (occurrence: None)
  Receive Date: 20060721
  Receipt Date: 20051025
  Transmission Date: 20061208
  Serious: No
  Sender: FDA-Public Use
  Company Number: US-GLAXOSMITHKLINE-A0579575A

PATIENT
  Age: 65 Year
  Sex: Female

DRUGS (11)
  1. AVANDIA [Suspect]
     Dosage: 2MG PER DAY
     Route: 048
     Dates: start: 20030301, end: 20030101
  2. ZEBETA [Concomitant]
  3. LANOXIN [Concomitant]
  4. HYZAAR [Concomitant]
  5. PREMARIN [Concomitant]
  6. ASPIRIN [Concomitant]
  7. LIPITOR [Concomitant]
  8. POLY-DM [Concomitant]
     Indication: MULTIPLE ALLERGIES
  9. METFORMIN [Concomitant]
  10. AVANDIA [Concomitant]
  11. CORTISONE [Concomitant]
     Route: 042

REACTIONS (3)
  - BLOOD GLUCOSE INCREASED [None]
  - DRUG INEFFECTIVE [None]
  - OEDEMA PERIPHERAL [None]
